FAERS Safety Report 9919345 (Version 2)
Quarter: 2014Q1

REPORT INFORMATION
  Report Type: Spontaneous
  Country: US (occurrence: US)
  Receive Date: 20140224
  Receipt Date: 20140326
  Transmission Date: 20141002
  Serious: Yes (Congenital Anomaly, Other)
  Sender: FDA-Public Use
  Company Number: US-PFIZER INC-2014049309

PATIENT
  Sex: Male

DRUGS (11)
  1. ZOLOFT [Suspect]
     Dosage: UNK
     Route: 064
     Dates: start: 20040127
  2. PRENATAL VITAMINS [Concomitant]
     Dosage: UNK
     Route: 064
  3. SUDAFED [Concomitant]
     Dosage: UNK
     Route: 064
  4. HYDROCODONE [Concomitant]
     Dosage: UNK
     Route: 064
  5. ACETAMINOPHEN W/CODEINE [Concomitant]
     Dosage: UNK
     Route: 064
  6. MACROBID [Concomitant]
     Dosage: UNK
     Route: 064
  7. BUTALBITAL [Concomitant]
     Dosage: UNK
     Route: 064
  8. TYLENOL [Concomitant]
     Dosage: UNK
     Route: 064
  9. ZITHROMAX Z-PACK [Concomitant]
     Dosage: UNK
     Route: 064
  10. PROPOXYPHENE NAPSYLATE W/ACETAMINOPHENE [Concomitant]
     Dosage: UNK
     Route: 064
  11. OXYCODONE/ACETAMINOPHEN [Concomitant]
     Dosage: UNK
     Route: 064

REACTIONS (6)
  - Maternal exposure during pregnancy [Unknown]
  - Patent ductus arteriosus [Unknown]
  - Pulmonary artery stenosis congenital [Unknown]
  - Congenital emphysema [Unknown]
  - Neonatal respiratory distress syndrome [Unknown]
  - Atrial septal defect [Unknown]
